FAERS Safety Report 19979103 (Version 1)
Quarter: 2021Q4

REPORT INFORMATION
  Report Type: Spontaneous
  Country: US (occurrence: US)
  Receive Date: 20211021
  Receipt Date: 20211021
  Transmission Date: 20220304
  Serious: Yes (Hospitalization)
  Sender: FDA-Public Use
  Company Number: US-JNJFOC-20211016016

PATIENT
  Age: 24 Year
  Sex: Female
  Weight: 52 kg

DRUGS (4)
  1. BENADRYL ALLERGY ULTRATAB [Suspect]
     Active Substance: DIPHENHYDRAMINE HYDROCHLORIDE
     Indication: Suicide attempt
     Dosage: 6 SLEEPING PILLS
     Route: 048
     Dates: start: 20031101, end: 20031101
  2. LORTAB [Suspect]
     Active Substance: ACETAMINOPHEN\HYDROCODONE BITARTRATE
     Indication: Suicide attempt
     Dosage: (ACETAMINOPHEN 500 MG AND HYDROCODONE BITARTRATE 5 MG) INGESTED 28 TABLETS ?TOTAL DAILY DOSE OF ACET
     Route: 048
     Dates: start: 20031101, end: 20031101
  3. REMERON [Suspect]
     Active Substance: MIRTAZAPINE
     Indication: Suicide attempt
     Dosage: 25 TABLETS
     Route: 048
     Dates: end: 20031101
  4. WELLBUTRIN [Concomitant]
     Active Substance: BUPROPION HYDROCHLORIDE
     Indication: Product used for unknown indication
     Dosage: 100 MG FOR 14 DAYS
     Route: 065
     Dates: end: 20030801

REACTIONS (3)
  - Suicide attempt [Not Recovered/Not Resolved]
  - Acute hepatic failure [Not Recovered/Not Resolved]
  - Intentional overdose [Not Recovered/Not Resolved]
